FAERS Safety Report 8885625 (Version 1)
Quarter: 2012Q4

REPORT INFORMATION
  Report Type: 
  Country: BR (occurrence: BR)
  Receive Date: 20121102
  Receipt Date: 20121102
  Transmission Date: 20130627
  Serious: Yes (Hospitalization)
  Sender: FDA-Public Use
  Company Number: BR-AMGEN-BRASP2012024789

PATIENT
  Age: 69 Year
  Sex: Female
  Weight: 70 kg

DRUGS (3)
  1. ENBREL [Suspect]
     Indication: PSORIASIS
     Dosage: UNK
     Route: 058
     Dates: start: 200808, end: 20101218
  2. ENBREL [Suspect]
     Dosage: 50 mg, 1x/week
     Route: 058
     Dates: start: 20110217, end: 201207
  3. ATENOLOL [Concomitant]
     Indication: HYPERTENSION
     Dosage: 25 mg, 1x/day

REACTIONS (5)
  - Drug ineffective [Unknown]
  - Surgery [Unknown]
  - Bacterial infection [Unknown]
  - Nail disorder [Unknown]
  - Skin exfoliation [Unknown]
